FAERS Safety Report 19124900 (Version 4)
Quarter: 2024Q1

REPORT INFORMATION
  Report Type: Spontaneous
  Country: HU (occurrence: HU)
  Receive Date: 20210412
  Receipt Date: 20240322
  Transmission Date: 20240409
  Serious: Yes (Hospitalization, Other)
  Sender: FDA-Public Use
  Company Number: HU-NOVARTISPH-NVSC2021HU068676

PATIENT
  Age: 45 Year
  Sex: Female
  Weight: 50 kg

DRUGS (6)
  1. TAFINLAR [Suspect]
     Active Substance: DABRAFENIB MESYLATE
     Indication: Malignant melanoma
     Dosage: 150 MG (2 X 2)
     Route: 048
     Dates: start: 20190829, end: 20200723
  2. TAFINLAR [Suspect]
     Active Substance: DABRAFENIB MESYLATE
     Dosage: 75 MG (2 X 2)
     Route: 065
  3. TAFINLAR [Suspect]
     Active Substance: DABRAFENIB MESYLATE
     Dosage: UNK
     Route: 065
     Dates: start: 2019
  4. MEKINIST [Suspect]
     Active Substance: TRAMETINIB DIMETHYL SULFOXIDE
     Indication: Malignant melanoma
     Dosage: 2 MG (1 X 1)
     Route: 048
     Dates: start: 20190829, end: 20200723
  5. MEKINIST [Suspect]
     Active Substance: TRAMETINIB DIMETHYL SULFOXIDE
     Dosage: UNK
     Route: 065
     Dates: start: 2019
  6. INTERFERON ALFA-2A [Concomitant]
     Active Substance: INTERFERON ALFA-2A
     Indication: Malignant melanoma
     Dosage: UNK UNK, Q3W (3 MILLION UNITS)
     Route: 058
     Dates: start: 201809

REACTIONS (9)
  - Loss of consciousness [Recovered/Resolved]
  - Chapped lips [Recovered/Resolved]
  - Tooth disorder [Recovered/Resolved]
  - Pyrexia [Recovered/Resolved]
  - Basal cell carcinoma [Unknown]
  - Erythema nodosum [Recovered/Resolved]
  - Skin papilloma [Recovered/Resolved]
  - Hyperkeratosis [Recovered/Resolved]
  - Skin papilloma [Recovered/Resolved]

NARRATIVE: CASE EVENT DATE: 20190101
